FAERS Safety Report 8643828 (Version 3)
Quarter: 2012Q4

REPORT INFORMATION
  Report Type: 
  Country: IE (occurrence: IE)
  Receive Date: 20120629
  Receipt Date: 20120907
  Transmission Date: 20130627
  Serious: Yes (Other)
  Sender: FDA-Public Use
  Company Number: IE-JNJFOC-20120611701

PATIENT
  Age: 71 Year
  Sex: Male

DRUGS (2)
  1. REMICADE [Suspect]
     Indication: RHEUMATOID ARTHRITIS
     Dosage: 7th infusion
     Route: 042
  2. REMICADE [Suspect]
     Indication: RHEUMATOID ARTHRITIS
     Dosage: 273 (units unspecified)
     Route: 042
     Dates: start: 20120618

REACTIONS (3)
  - Dysstasia [Unknown]
  - Chills [Unknown]
  - Infusion related reaction [Unknown]
